FAERS Safety Report 19003385 (Version 1)
Quarter: 2021Q1

REPORT INFORMATION
  Report Type: Other
  Country: US (occurrence: US)
  Receive Date: 20210312
  Receipt Date: 20210312
  Transmission Date: 20210420
  Serious: Yes (Hospitalization)
  Sender: FDA-Public Use
  Company Number: US-ROCHE-2782134

PATIENT
  Sex: Female
  Weight: 58.11 kg

DRUGS (5)
  1. MAYZENT [Suspect]
     Active Substance: SIPONIMOD
     Indication: MULTIPLE SCLEROSIS
     Route: 065
     Dates: start: 202009, end: 202009
  2. OCREVUS [Suspect]
     Active Substance: OCRELIZUMAB
     Indication: RELAPSING MULTIPLE SCLEROSIS
     Route: 042
  3. PROVIGIL [Concomitant]
     Active Substance: MODAFINIL
     Indication: FATIGUE
     Dosage: BREAKS IN HALF, HALF IN MORNING, HALF AT LUNCH
     Route: 048
     Dates: start: 2006
  4. OCREVUS [Suspect]
     Active Substance: OCRELIZUMAB
     Indication: SECONDARY PROGRESSIVE MULTIPLE SCLEROSIS
     Dosage: ON 05/JUN/2018, 07/DEC/2018, 28/DEC/2018, 07/JUN/2019, 20/JUN/2019 AND 12/JUL/2019, RECEIVED OCRELIZ
     Route: 042
     Dates: start: 20171207
  5. GABAPENTIN. [Concomitant]
     Active Substance: GABAPENTIN
     Indication: PAIN
     Route: 048
     Dates: start: 2016

REACTIONS (4)
  - Rib fracture [Recovered/Resolved]
  - Meningitis [Recovered/Resolved]
  - Fall [Unknown]
  - Benign breast neoplasm [Recovered/Resolved]

NARRATIVE: CASE EVENT DATE: 2019
